FAERS Safety Report 5184160-3 (Version None)
Quarter: 2006Q4

REPORT INFORMATION
  Report Type: 
  Country: None (occurrence: None)
  Receive Date: 20061212
  Receipt Date: 20061204
  Transmission Date: 20070319
  Serious: Yes (Death, Hospitalization, Other)
  Sender: FDA-Public Use
  Company Number: US-2006-026155

PATIENT
  Age: 81 Year
  Sex: Male

DRUGS (3)
  1. CAMPATH [Suspect]
     Indication: CHRONIC LYMPHOCYTIC LEUKAEMIA
     Dosage: SEE IMAGE
     Dates: start: 20060303, end: 20060301
  2. CAMPATH [Suspect]
     Indication: CHRONIC LYMPHOCYTIC LEUKAEMIA
     Dosage: SEE IMAGE
     Dates: start: 20060328, end: 20060418
  3. CAMPATH [Suspect]
     Indication: CHRONIC LYMPHOCYTIC LEUKAEMIA
     Dosage: SEE IMAGE
     Dates: end: 20060819

REACTIONS (16)
  - ASPIRATION [None]
  - AUTOIMMUNE DISORDER [None]
  - BIOPSY BONE MARROW ABNORMAL [None]
  - CHRONIC INFLAMMATORY DEMYELINATING POLYRADICULONEUROPATHY [None]
  - DRUG TOXICITY [None]
  - DYSGEUSIA [None]
  - GENERALISED OEDEMA [None]
  - HERPES SIMPLEX [None]
  - INAPPROPRIATE SCHEDULE OF DRUG ADMINISTRATION [None]
  - MUSCLE SPASMS [None]
  - RASH [None]
  - RENAL FAILURE [None]
  - RESPIRATORY FAILURE [None]
  - STOMATITIS [None]
  - SUPERINFECTION [None]
  - WHITE BLOOD CELL COUNT DECREASED [None]
